FAERS Safety Report 16834500 (Version 1)
Quarter: 2019Q3

REPORT INFORMATION
  Report Type: Spontaneous
  Country: BR (occurrence: BR)
  Receive Date: 20190920
  Receipt Date: 20190920
  Transmission Date: 20191005
  Serious: Yes (Other)
  Sender: FDA-Public Use
  Company Number: PHHY2018BR075740

PATIENT
  Sex: Female

DRUGS (1)
  1. ESTRADOT [Suspect]
     Active Substance: ESTRADIOL
     Indication: PRODUCT USED FOR UNKNOWN INDICATION
     Dosage: UNK
     Route: 065

REACTIONS (9)
  - Gait disturbance [Unknown]
  - Endometrial hyperplasia [Unknown]
  - Nervousness [Unknown]
  - Anxiety [Unknown]
  - Burning sensation [Unknown]
  - Migraine [Unknown]
  - Varicose vein [Unknown]
  - Uterine polyp [Unknown]
  - Malaise [Unknown]
